FAERS Safety Report 24242759 (Version 6)
Quarter: 2024Q4

REPORT INFORMATION
  Report Type: Spontaneous
  Country: PR (occurrence: PR)
  Receive Date: 20240823
  Receipt Date: 20241128
  Transmission Date: 20250114
  Serious: No
  Sender: PFIZER
  Company Number: PR-PFIZER INC-202400240613

PATIENT
  Age: 14 Year
  Sex: Male

DRUGS (2)
  1. GENOTROPIN [Suspect]
     Active Substance: SOMATROPIN
     Dosage: 2 MG
     Dates: start: 202210
  2. GENOTROPIN [Suspect]
     Active Substance: SOMATROPIN
     Dosage: 1.8 MG
     Dates: start: 202301

REACTIONS (3)
  - Device physical property issue [Unknown]
  - Injection site pain [Unknown]
  - Drug dose omission by device [Unknown]
